FAERS Safety Report 8038842-6 (Version None)
Quarter: 2012Q1

REPORT INFORMATION
  Report Type: 
  Country: None (occurrence: None)
  Receive Date: 20120111
  Receipt Date: 20111207
  Transmission Date: 20120608
  Serious: No
  Sender: FDA-Public Use
  Company Number: US-AMGEN-USASP2011065285

PATIENT
  Age: 38 Year
  Sex: Male

DRUGS (2)
  1. SORIATANE [Concomitant]
     Dosage: UNK
  2. ENBREL [Suspect]
     Indication: PSORIASIS
     Dosage: 50 MG, QWK
     Dates: start: 20031105

REACTIONS (2)
  - VISION BLURRED [None]
  - VITREOUS FLOATERS [None]
